FAERS Safety Report 4499636-1 (Version None)
Quarter: 2004Q4

REPORT INFORMATION
  Report Type: 
  Country: None (occurrence: None)
  Receive Date: 20040928
  Receipt Date: 20040824
  Transmission Date: 20050328
  Serious: No
  Sender: FDA-Public Use
  Company Number: 04P-163-0271333-00

PATIENT
  Age: 63 Year
  Sex: Female
  Weight: 65.7716 kg

DRUGS (6)
  1. HUMIRA [Suspect]
     Indication: RHEUMATOID ARTHRITIS
     Dosage: 40 MG, 1 IN 2 WK, SUBCUTANEOUS
     Route: 058
     Dates: start: 20040401
  2. IMIPRAM TAB [Concomitant]
  3. ESTROGENS [Concomitant]
  4. ESOMEPRAZOLE [Concomitant]
  5. CENTRUM [Concomitant]
  6. CALCIUM WITH VITAMIN D [Concomitant]

REACTIONS (1)
  - INJECTION SITE ERYTHEMA [None]
